FAERS Safety Report 18769724 (Version 1)
Quarter: 2021Q1

REPORT INFORMATION
  Report Type: Spontaneous
  Country: CN (occurrence: CN)
  Receive Date: 20210121
  Receipt Date: 20210121
  Transmission Date: 20210419
  Serious: Yes (Hospitalization)
  Sender: FDA-Public Use
  Company Number: CN-ASTRAZENECA-2021A004914

PATIENT

DRUGS (1)
  1. BRILINTA [Suspect]
     Active Substance: TICAGRELOR
     Dosage: 90MG, 14 TABLETS
     Route: 048

REACTIONS (3)
  - Palpitations [Unknown]
  - Agitation [Unknown]
  - Discomfort [Unknown]
